FAERS Safety Report 5133470-4 (Version None)
Quarter: 2006Q4

REPORT INFORMATION
  Report Type: 
  Country: None (occurrence: None)
  Receive Date: 20061024
  Receipt Date: 20060503
  Transmission Date: 20070319
  Serious: Yes (Hospitalization)
  Sender: FDA-Public Use
  Company Number: SE-BRISTOL-MYERS SQUIBB COMPANY-13364856

PATIENT
  Age: 64 Year
  Sex: Female

DRUGS (22)
  1. DASATINIB [Suspect]
     Indication: CHRONIC MYELOID LEUKAEMIA
     Dosage: INTERRUPTED 10MAY06 140 MG 21OCT TO 03NOV05 100 MG 23NOV05 TO 17FEB06
     Route: 048
     Dates: start: 20060223
  2. POTASSIUM CHLORIDE [Concomitant]
  3. METOPROLOL [Concomitant]
  4. AMILORIDE HYDROCHLORIDE [Concomitant]
  5. AMILORIDE HCL + HCTZ [Concomitant]
  6. ALLOPURINOL [Concomitant]
  7. MAGNESIUM HYDROXIDE TAB [Concomitant]
  8. TRAMADOL [Concomitant]
  9. OXAZEPAM [Concomitant]
  10. GLYCERYL TRINITRATE [Concomitant]
  11. SALMETEROL XINAFOATE+FLUTICASONE PROP [Concomitant]
  12. BETAMETHASONE [Concomitant]
  13. FUROSEMIDE [Concomitant]
  14. SALBUTAMOL [Concomitant]
  15. IPRATROPIUM BROMIDE [Concomitant]
  16. BUDESONIDE [Concomitant]
  17. LORABID [Concomitant]
  18. DIGOXIN [Concomitant]
  19. INSULATARD NPH HUMAN [Concomitant]
  20. SODIUM CHLORIDE [Concomitant]
  21. PREDNISOLONE [Concomitant]
  22. DOXYCYCLINE [Concomitant]
     Dates: end: 20060430

REACTIONS (3)
  - CHRONIC OBSTRUCTIVE PULMONARY DISEASE [None]
  - DYSPNOEA [None]
  - ERYSIPELAS [None]
